FAERS Safety Report 9701778 (Version 1)
Quarter: 2013Q4

REPORT INFORMATION
  Report Type: Spontaneous
  Country: US (occurrence: None)
  Receive Date: 20131120
  Receipt Date: 20131120
  Transmission Date: 20140711
  Serious: Yes (Disabling)
  Sender: FDA-Public Use
  Company Number: None

PATIENT
  Age: 46 Year
  Sex: Female
  Weight: 75.3 kg

DRUGS (1)
  1. MIRVASO [Suspect]
     Indication: ROSACEA
     Dosage: COVERED AFFECTED AREA ONCE DAILY APPLIED TO A SURFACE, USUALLY THE SKIN
     Route: 061
     Dates: start: 20131104, end: 20131108

REACTIONS (12)
  - Flushing [None]
  - Erythema [None]
  - Myalgia [None]
  - Muscle spasms [None]
  - Gastrointestinal disorder [None]
  - Dyspnoea [None]
  - Panic reaction [None]
  - Lung disorder [None]
  - Bronchospasm [None]
  - Hypersensitivity [None]
  - Tremor [None]
  - Asthenia [None]
